FAERS Safety Report 20369864 (Version 1)
Quarter: 2022Q1

REPORT INFORMATION
  Report Type: Spontaneous
  Country: US (occurrence: None)
  Receive Date: 20220123
  Receipt Date: 20220123
  Transmission Date: 20220424
  Serious: No
  Sender: FDA-Public Use
  Company Number: None

PATIENT
  Age: 55 Year
  Sex: Female

DRUGS (1)
  1. SUN BUM SUNSCREEN LIP BALM BROAD SPECTRUM SPF 30 MANGO [Suspect]
     Active Substance: AVOBENZONE\HOMOSALATE\OCTINOXATE\OCTISALATE
     Indication: Chapped lips
     Dates: start: 20220120, end: 20220122

REACTIONS (6)
  - Lip dry [None]
  - Erythema [None]
  - Pruritus [None]
  - Acne [None]
  - Skin irritation [None]
  - Pain [None]

NARRATIVE: CASE EVENT DATE: 20220121
